FAERS Safety Report 9163532 (Version 1)
Quarter: 2013Q1

REPORT INFORMATION
  Report Type: Spontaneous
  Country: US (occurrence: US)
  Receive Date: 20130314
  Receipt Date: 20130314
  Transmission Date: 20140127
  Serious: Yes (Hospitalization)
  Sender: FDA-Public Use
  Company Number: PHEH2013US005804

PATIENT
  Sex: Female

DRUGS (5)
  1. DIOVAN [Suspect]
     Dosage: UNK UKN, UNK
  2. FLECTOR [Interacting]
     Dosage: UNK UKN, UNK
  3. PREVACID [Suspect]
     Dosage: UNK UKN, UNK
  4. DEPAKOTE [Interacting]
     Dosage: UNK UKN, UNK
  5. BABY ASPIRIN [Interacting]
     Dosage: UNK UKN, UNK

REACTIONS (2)
  - Drug interaction [Unknown]
  - Gastritis [Unknown]
